FAERS Safety Report 5956331-7 (Version None)
Quarter: 2008Q4

REPORT INFORMATION
  Report Type: 
  Country: None (occurrence: None)
  Receive Date: 20081118
  Receipt Date: 20081113
  Transmission Date: 20090506
  Serious: Yes (Death, Other)
  Sender: FDA-Public Use
  Company Number: PHHY2008CA28279

PATIENT
  Sex: Male

DRUGS (1)
  1. CLOZARIL [Suspect]
     Dosage: UNK
     Dates: start: 20020710

REACTIONS (3)
  - AORTIC STENOSIS [None]
  - INFLAMMATORY BOWEL DISEASE [None]
  - MYOCARDIAL INFARCTION [None]
